FAERS Safety Report 4666029-3 (Version None)
Quarter: 2005Q2

REPORT INFORMATION
  Report Type: 
  Country: None (occurrence: None)
  Receive Date: 20050517
  Receipt Date: 20050517
  Transmission Date: 20051028
  Serious: Yes (Other)
  Sender: FDA-Public Use
  Company Number: None

PATIENT
  Sex: Male
  Weight: 99.7913 kg

DRUGS (2)
  1. IBUPROFEN [Suspect]
     Indication: BACK PAIN
     Dosage: 1 TABLET DAILY ORAL
     Route: 048
     Dates: start: 20050430, end: 20050515
  2. IBUPROFEN [Suspect]
     Indication: NECK PAIN
     Dosage: 1 TABLET DAILY ORAL
     Route: 048
     Dates: start: 20050430, end: 20050515

REACTIONS (2)
  - PHARMACEUTICAL PRODUCT COMPLAINT [None]
  - THERAPEUTIC RESPONSE UNEXPECTED WITH DRUG SUBSTITUTION [None]
